FAERS Safety Report 4585333-0 (Version None)
Quarter: 2005Q1

REPORT INFORMATION
  Report Type: 
  Country: None (occurrence: None)
  Receive Date: 20050214
  Receipt Date: 20050204
  Transmission Date: 20050727
  Serious: Yes (Hospitalization)
  Sender: FDA-Public Use
  Company Number: US-2004-032904

PATIENT
  Age: 57 Year
  Sex: Male
  Weight: 97.5 kg

DRUGS (2)
  1. BETASERON [Suspect]
     Indication: MULTIPLE SCLEROSIS
     Dosage: 8 MIU, EVERY 2D, SUBCUTANEOUS
     Route: 058
     Dates: start: 20020113, end: 20040601
  2. BACLOFEN [Concomitant]

REACTIONS (1)
  - CARDIAC FAILURE [None]
